FAERS Safety Report 5645578-5 (Version None)
Quarter: 2008Q1

REPORT INFORMATION
  Report Type: 
  Country: None (occurrence: None)
  Receive Date: 20080229
  Receipt Date: 20080227
  Transmission Date: 20080703
  Serious: Yes (Other)
  Sender: FDA-Public Use
  Company Number: FR-JNJFOC-20080206549

PATIENT
  Age: 25 Year
  Sex: Female

DRUGS (3)
  1. RISPERDAL [Suspect]
     Route: 048
  2. RISPERDAL [Suspect]
     Indication: HALLUCINATION
     Route: 048
  3. DEROXAT [Concomitant]
     Indication: DEPRESSION
     Route: 048

REACTIONS (4)
  - FACIAL BONES FRACTURE [None]
  - FALL [None]
  - SYNCOPE [None]
  - WITHDRAWAL SYNDROME [None]
